FAERS Safety Report 12375735 (Version 1)
Quarter: 2016Q2

REPORT INFORMATION
  Report Type: Spontaneous
  Country: US (occurrence: US)
  Receive Date: 20160517
  Receipt Date: 20160517
  Transmission Date: 20160815
  Serious: No
  Sender: FDA-Public Use
  Company Number: US-BAYER-2016-094856

PATIENT

DRUGS (1)
  1. XOFIGO [Suspect]
     Active Substance: RADIUM RA-223 DICHLORIDE
     Dosage: 151.2 MICROCURIES
     Dates: start: 20160504

REACTIONS (4)
  - Lethargy [None]
  - Depressed mood [None]
  - Dizziness [None]
  - Fatigue [None]
